FAERS Safety Report 8370380-3 (Version None)
Quarter: 2012Q2

REPORT INFORMATION
  Report Type: 
  Country: None (occurrence: None)
  Receive Date: 20120518
  Receipt Date: 20120507
  Transmission Date: 20120825
  Serious: Yes (Other)
  Sender: FDA-Public Use
  Company Number: US-JNJFOC-20120507786

PATIENT
  Sex: Female
  Weight: 83.46 kg

DRUGS (2)
  1. REMICADE [Suspect]
     Indication: RHEUMATOID ARTHRITIS
     Route: 042
     Dates: start: 20120301, end: 20120401
  2. PREDNISONE [Suspect]
     Indication: PROPHYLAXIS
     Route: 065
     Dates: start: 20120401, end: 20120401

REACTIONS (4)
  - ADVERSE EVENT [None]
  - THROAT TIGHTNESS [None]
  - FEELING HOT [None]
  - DYSPNOEA [None]
